FAERS Safety Report 18272484 (Version 1)
Quarter: 2020Q3

REPORT INFORMATION
  Report Type: Spontaneous
  Country: US (occurrence: US)
  Receive Date: 20200916
  Receipt Date: 20200916
  Transmission Date: 20201103
  Serious: Yes (Other)
  Sender: FDA-Public Use
  Company Number: None

PATIENT
  Age: 34 Year
  Sex: Female
  Weight: 95.5 kg

DRUGS (18)
  1. OLANZAPINE. [Concomitant]
     Active Substance: OLANZAPINE
  2. XANAX [Concomitant]
     Active Substance: ALPRAZOLAM
  3. IMODIUM A?D [Concomitant]
     Active Substance: LOPERAMIDE HYDROCHLORIDE
  4. BENADRYL [Concomitant]
     Active Substance: DIPHENHYDRAMINE HYDROCHLORIDE
     Dates: end: 20200915
  5. COLACE [Concomitant]
     Active Substance: DOCUSATE SODIUM
  6. MEKINIST [Suspect]
     Active Substance: TRAMETINIB DIMETHYL SULFOXIDE
     Indication: MALIGNANT MELANOMA
     Route: 048
     Dates: start: 20200604, end: 20200911
  7. PERCOCET [Concomitant]
     Active Substance: ACETAMINOPHEN\OXYCODONE HYDROCHLORIDE
  8. CYCLOBENZAPRINE. [Concomitant]
     Active Substance: CYCLOBENZAPRINE
  9. RANITIDINE. [Concomitant]
     Active Substance: RANITIDINE
  10. POTASSIUM [Concomitant]
     Active Substance: POTASSIUM
     Dates: start: 20200915, end: 20200915
  11. HYDROCORTISONE CREAM [Concomitant]
     Active Substance: HYDROCORTISONE
     Dates: end: 20200915
  12. ZOLOFT [Concomitant]
     Active Substance: SERTRALINE HYDROCHLORIDE
  13. DEXAMETHASONE. [Concomitant]
     Active Substance: DEXAMETHASONE
  14. PREDNISONE TAPER X 12 DAYS [Concomitant]
     Dates: start: 20200915
  15. TAFINLAR [Suspect]
     Active Substance: DABRAFENIB MESYLATE
     Indication: MALIGNANT MELANOMA
     Route: 048
     Dates: start: 20200604, end: 20200911
  16. KEPPRA [Concomitant]
     Active Substance: LEVETIRACETAM
  17. PROMETHAZINE [Concomitant]
     Active Substance: PROMETHAZINE HYDROCHLORIDE
  18. FERROUS SULFATE. [Concomitant]
     Active Substance: FERROUS SULFATE

REACTIONS (11)
  - Diarrhoea [None]
  - Ileus [None]
  - Constipation [None]
  - Hypokalaemia [None]
  - Rash [None]
  - Vaginal discharge [None]
  - Therapy cessation [None]
  - Urticaria [None]
  - Abdominal pain [None]
  - Gait disturbance [None]
  - Pain [None]

NARRATIVE: CASE EVENT DATE: 20200915
